FAERS Safety Report 23307693 (Version 5)
Quarter: 2024Q2

REPORT INFORMATION
  Report Type: Report from Study
  Country: US (occurrence: US)
  Receive Date: 20231218
  Receipt Date: 20240408
  Transmission Date: 20240716
  Serious: Yes (Hospitalization)
  Sender: FDA-Public Use
  Company Number: US-BAUSCH-BL-2023-018442

PATIENT
  Age: 55 Year
  Sex: Female

DRUGS (3)
  1. XIFAXAN [Interacting]
     Active Substance: RIFAXIMIN
     Indication: Product used for unknown indication
     Route: 065
     Dates: end: 2023
  2. XIFAXAN [Interacting]
     Active Substance: RIFAXIMIN
     Dosage: RESTARTED
     Route: 065
     Dates: start: 202312
  3. XIFAXAN [Interacting]
     Active Substance: RIFAXIMIN
     Route: 048
     Dates: end: 202403

REACTIONS (5)
  - Hospitalisation [Unknown]
  - Drug interaction [Unknown]
  - Therapy interrupted [Unknown]
  - Inability to afford medication [Unknown]
  - Insurance issue [Unknown]

NARRATIVE: CASE EVENT DATE: 20230101
